FAERS Safety Report 7244719-6 (Version None)
Quarter: 2011Q1

REPORT INFORMATION
  Report Type: 
  Country: None (occurrence: None)
  Receive Date: 20110126
  Receipt Date: 20110118
  Transmission Date: 20110831
  Serious: Yes (Hospitalization)
  Sender: FDA-Public Use
  Company Number: US-BIOGENIDEC-2011BI002068

PATIENT
  Sex: Female
  Weight: 77 kg

DRUGS (1)
  1. AVONEX [Suspect]
     Indication: MULTIPLE SCLEROSIS
     Route: 030
     Dates: start: 20010910

REACTIONS (7)
  - ARTHROPATHY [None]
  - BLADDER CANCER [None]
  - WEIGHT DECREASED [None]
  - BACK PAIN [None]
  - THYROID CANCER [None]
  - DIABETES MELLITUS [None]
  - SPINAL COLUMN STENOSIS [None]
